FAERS Safety Report 9704912 (Version 1)
Quarter: 2013Q4

REPORT INFORMATION
  Report Type: Not Available
  Country: US (occurrence: US)
  Receive Date: 20131122
  Receipt Date: 20131122
  Transmission Date: 20140711
  Serious: No
  Sender: FDA-Public Use
  Company Number: US-AMARIN PHARMA, INC.-2013AMR000065

PATIENT
  Age: 52 Year
  Sex: Female
  Weight: 79.45 kg

DRUGS (7)
  1. VASCEPA [Suspect]
     Indication: BLOOD TRIGLYCERIDES
     Route: 048
     Dates: start: 20130825, end: 20130905
  2. VASCEPA [Suspect]
  3. METFORMIN [Concomitant]
     Indication: MENSTRUAL CYCLE MANAGEMENT
     Route: 048
  4. ASPIRIN [Concomitant]
     Indication: PRODUCT USED FOR UNKNOWN INDICATION
     Route: 048
  5. VITAMINS NOS [Concomitant]
     Indication: PRODUCT USED FOR UNKNOWN INDICATION
     Route: 048
  6. CALCIUM CITRATE [Concomitant]
     Indication: PRODUCT USED FOR UNKNOWN INDICATION
     Route: 048
  7. OSTEO BI-FLEX [Concomitant]
     Indication: ARTHRITIS
     Route: 048

REACTIONS (1)
  - Diarrhoea [Not Recovered/Not Resolved]
